FAERS Safety Report 9718443 (Version 1)
Quarter: 2013Q4

REPORT INFORMATION
  Report Type: Spontaneous
  Country: US (occurrence: US)
  Receive Date: 20131125
  Receipt Date: 20131125
  Transmission Date: 20140711
  Serious: No
  Sender: FDA-Public Use
  Company Number: US-VIVUS-2013V1000614

PATIENT
  Age: 24 Year
  Sex: Female

DRUGS (1)
  1. QSYMIA [Suspect]
     Indication: PRODUCT USED FOR UNKNOWN INDICATION

REACTIONS (4)
  - Blood urine present [Unknown]
  - Crystal urine present [Unknown]
  - Flank pain [Unknown]
  - Back pain [Unknown]
